FAERS Safety Report 6640309-4 (Version None)
Quarter: 2010Q1

REPORT INFORMATION
  Report Type: 
  Country: None (occurrence: None)
  Receive Date: 20100302
  Receipt Date: 20091120
  Transmission Date: 20100710
  Serious: Yes (Other)
  Sender: FDA-Public Use
  Company Number: 2009277815

PATIENT
  Sex: Male

DRUGS (1)
  1. TOVIAZ [Suspect]

REACTIONS (1)
  - URINARY RETENTION [None]
